FAERS Safety Report 15582539 (Version 1)
Quarter: 2018Q4

REPORT INFORMATION
  Report Type: Spontaneous
  Country: US (occurrence: US)
  Receive Date: 20181105
  Receipt Date: 20181105
  Transmission Date: 20190205
  Serious: Yes (Other)
  Sender: FDA-Public Use
  Company Number: US-JNJFOC-20181036269

PATIENT

DRUGS (2)
  1. ACETAMINOPHEN. [Suspect]
     Active Substance: ACETAMINOPHEN
     Indication: PRODUCT USED FOR UNKNOWN INDICATION
     Route: 045
     Dates: start: 2017
  2. ACETAMINOPHEN. [Suspect]
     Active Substance: ACETAMINOPHEN
     Route: 045

REACTIONS (6)
  - Mucosal necrosis [Unknown]
  - Intentional product misuse [Unknown]
  - Incorrect route of product administration [Unknown]
  - Sinusitis [Unknown]
  - Fungal disease carrier [Unknown]
  - Bone disorder [Unknown]
